FAERS Safety Report 25440156 (Version 1)
Quarter: 2025Q2

REPORT INFORMATION
  Report Type: Spontaneous
  Country: US (occurrence: US)
  Receive Date: 20250616
  Receipt Date: 20250616
  Transmission Date: 20250717
  Serious: No
  Sender: BOEHRINGER INGELHEIM
  Company Number: US-BoehringerIngelheim-2025-BI-076905

PATIENT
  Age: 74 Year
  Sex: Male

DRUGS (1)
  1. OFEV [Suspect]
     Active Substance: NINTEDANIB
     Indication: Interstitial lung disease
     Dates: end: 202506

REACTIONS (2)
  - Post procedural haemorrhage [Recovering/Resolving]
  - Oesophagogastroduodenoscopy [Recovering/Resolving]

NARRATIVE: CASE EVENT DATE: 20250601
